FAERS Safety Report 8277068-8 (Version None)
Quarter: 2012Q2

REPORT INFORMATION
  Report Type: 
  Country: None (occurrence: None)
  Receive Date: 20120412
  Receipt Date: 20120402
  Transmission Date: 20120825
  Serious: Yes (Hospitalization)
  Sender: FDA-Public Use
  Company Number: PHHY2012FR029249

PATIENT
  Sex: Female

DRUGS (7)
  1. IMOVANE [Concomitant]
     Dosage: UNK UKN, UNK
  2. ESCITALOPRAM OXALATE [Concomitant]
     Dosage: UNK UKN, UNK
  3. NEXIUM [Concomitant]
     Dosage: UNK UKN, UNK
  4. EXELON [Suspect]
     Dosage: 9.5 MG/24 HOURS
     Route: 062
     Dates: start: 20111003, end: 20111004
  5. ERGOCALCIFEROL [Concomitant]
     Dosage: UNK UKN, UNK
  6. VOLTAREN [Concomitant]
     Dosage: UNK UKN, UNK
  7. EXELON [Suspect]
     Dosage: 4.6 MG/24 HOURS
     Route: 062
     Dates: start: 20110903, end: 20111003

REACTIONS (1)
  - STATUS EPILEPTICUS [None]
